FAERS Safety Report 8042981-3 (Version None)
Quarter: 2012Q1

REPORT INFORMATION
  Report Type: 
  Country: None (occurrence: None)
  Receive Date: 20120112
  Receipt Date: 20120104
  Transmission Date: 20120608
  Serious: Yes (Other)
  Sender: FDA-Public Use
  Company Number: PHEH2012US000627

PATIENT
  Sex: Male

DRUGS (3)
  1. PROTONIX [Concomitant]
  2. ATOVAQUONE [Concomitant]
  3. GLEEVEC [Suspect]
     Indication: ACUTE LYMPHOCYTIC LEUKAEMIA

REACTIONS (10)
  - CYSTIC LYMPHANGIOMA [None]
  - LIVER FUNCTION TEST ABNORMAL [None]
  - THROMBOCYTOPENIA [None]
  - BALANCE DISORDER [None]
  - WEIGHT INCREASED [None]
  - TRANSAMINASES INCREASED [None]
  - HAEMOSIDEROSIS [None]
  - ANAL FISTULA [None]
  - HEPATIC STEATOSIS [None]
  - PANCYTOPENIA [None]
